FAERS Safety Report 10409756 (Version 2)
Quarter: 2014Q3

REPORT INFORMATION
  Report Type: Spontaneous
  Country: AU (occurrence: AU)
  Receive Date: 20140826
  Receipt Date: 20140915
  Transmission Date: 20150326
  Serious: Yes (Death, Hospitalization, Other)
  Sender: FDA-Public Use
  Company Number: AU-ACTELION-A-CH2014-104222

PATIENT
  Age: 14 Year
  Sex: Female
  Weight: 46 kg

DRUGS (6)
  1. TRACLEER [Suspect]
     Active Substance: BOSENTAN\BOSENTAN MONOHYDRATE
     Indication: PULMONARY ARTERIAL HYPERTENSION
     Dosage: 125 MG, BID
     Route: 048
     Dates: start: 201211, end: 20140809
  2. TRACLEER [Suspect]
     Active Substance: BOSENTAN\BOSENTAN MONOHYDRATE
     Dosage: 32.5 MG, BID
     Route: 048
     Dates: start: 20070418, end: 200809
  3. SILDENAFIL [Concomitant]
     Active Substance: SILDENAFIL
     Dosage: UNK
     Dates: start: 20140526
  4. TRACLEER [Suspect]
     Active Substance: BOSENTAN\BOSENTAN MONOHYDRATE
     Dosage: 62.5 MG, BID
     Route: 048
     Dates: start: 200809
  5. TRACLEER [Suspect]
     Active Substance: BOSENTAN\BOSENTAN MONOHYDRATE
     Dosage: 2 MG/KG, BID
     Route: 048
     Dates: start: 20110720, end: 20121127
  6. COUMADIN [Concomitant]
     Active Substance: WARFARIN SODIUM

REACTIONS (8)
  - Menorrhagia [Unknown]
  - Circulatory collapse [Unknown]
  - Lethargy [Unknown]
  - Cardiac arrest [Fatal]
  - Anaemia [Unknown]
  - Alanine aminotransferase increased [Unknown]
  - Syncope [Unknown]
  - Transfusion [Unknown]

NARRATIVE: CASE EVENT DATE: 20140808
